FAERS Safety Report 16977273 (Version 1)
Quarter: 2019Q4

REPORT INFORMATION
  Report Type: Spontaneous
  Country: US (occurrence: US)
  Receive Date: 20191031
  Receipt Date: 20191031
  Transmission Date: 20200122
  Serious: Yes (Other)
  Sender: FDA-Public Use
  Company Number: US-SUN PHARMACEUTICAL INDUSTRIES LTD-2019R1-225555

PATIENT
  Age: 32 Year
  Sex: Male

DRUGS (1)
  1. LOPERAMIDE [Suspect]
     Active Substance: LOPERAMIDE
     Indication: PRODUCT USED FOR UNKNOWN INDICATION
     Dosage: 2 MG (250 TABLETS)
     Route: 065

REACTIONS (13)
  - Overdose [Unknown]
  - Blood pressure abnormal [Unknown]
  - Electrocardiogram QT prolonged [Recovering/Resolving]
  - Gastrointestinal sounds abnormal [Unknown]
  - Sensory loss [Recovering/Resolving]
  - Rhabdomyolysis [Unknown]
  - Lung disorder [Unknown]
  - Asthenia [Recovering/Resolving]
  - Leukocytosis [Unknown]
  - Electrocardiogram QRS complex prolonged [Recovering/Resolving]
  - Respiratory rate decreased [Unknown]
  - Heart rate abnormal [Unknown]
  - Acute kidney injury [Unknown]
